FAERS Safety Report 8407088-1 (Version None)
Quarter: 2012Q2

REPORT INFORMATION
  Report Type: 
  Country: None (occurrence: None)
  Receive Date: 20120604
  Receipt Date: 20120530
  Transmission Date: 20120825
  Serious: Yes (Hospitalization)
  Sender: FDA-Public Use
  Company Number: FR-ROCHE-1073451

PATIENT
  Age: 82 Year
  Sex: Female

DRUGS (6)
  1. VALIUM [Suspect]
     Indication: PRODUCT USED FOR UNKNOWN INDICATION
     Route: 048
     Dates: start: 20120411
  2. MIANSERINE [Suspect]
     Route: 048
     Dates: start: 20120420
  3. MIANSERINE [Suspect]
     Indication: PRODUCT USED FOR UNKNOWN INDICATION
     Dosage: BRAND NAME: MIANSERINE ARROW
     Route: 048
  4. MIANSERINE [Suspect]
     Route: 048
     Dates: start: 20120425
  5. DIGOXIN [Suspect]
     Indication: ATRIAL FIBRILLATION
     Route: 048
     Dates: start: 20120418, end: 20120430
  6. IMOVANE [Concomitant]
     Indication: INSOMNIA

REACTIONS (1)
  - CONVULSION [None]
